FAERS Safety Report 6404058-X (Version None)
Quarter: 2009Q4

REPORT INFORMATION
  Report Type: 
  Country: None (occurrence: None)
  Receive Date: 20091016
  Receipt Date: 20090820
  Transmission Date: 20100525
  Serious: No
  Sender: FDA-Public Use
  Company Number: US-ALEXION-A200900676

PATIENT
  Sex: Female

DRUGS (10)
  1. SOLIRIS [Suspect]
     Indication: PAROXYSMAL NOCTURNAL HAEMOGLOBINURIA
     Dosage: 600 MG, QW
     Route: 042
     Dates: start: 20071002, end: 20071001
  2. SOLIRIS [Suspect]
     Dosage: 900 MG, Q2W
     Route: 042
     Dates: start: 20071030
  3. SOLIRIS [Suspect]
     Dosage: 900 MG, SINGLE
     Route: 042
     Dates: start: 20090819, end: 20090819
  4. ASPIRIN [Concomitant]
     Dosage: UNK
  5. COUMADIN [Concomitant]
     Dosage: UNK
  6. LASIX [Concomitant]
     Dosage: UNK
  7. METOPROLOL [Concomitant]
     Dosage: UNK
  8. NITRO                              /00003201/ [Concomitant]
     Dosage: UNK
  9. PLAVIX [Concomitant]
     Dosage: UNK
  10. TRENTAL [Concomitant]
     Dosage: UNK

REACTIONS (2)
  - DYSPNOEA [None]
  - FATIGUE [None]
